FAERS Safety Report 6982615-X (Version None)
Quarter: 2010Q3

REPORT INFORMATION
  Report Type: 
  Country: None (occurrence: None)
  Receive Date: 20100914
  Receipt Date: 20100224
  Transmission Date: 20110219
  Serious: No
  Sender: FDA-Public Use
  Company Number: US-PFIZER INC-2010024247

PATIENT
  Sex: Female

DRUGS (9)
  1. LYRICA [Suspect]
     Indication: INTERVERTEBRAL DISC PROTRUSION
     Dosage: 25 MG, 2X/DAY
     Route: 048
     Dates: start: 20100201
  2. LYRICA [Suspect]
  3. LYRICA [Suspect]
     Indication: NERVE COMPRESSION
  4. LYRICA [Suspect]
     Indication: SPINAL COLUMN STENOSIS
  5. LYRICA [Suspect]
     Indication: NERVE BLOCK
  6. LYRICA [Suspect]
     Indication: FIBROMYALGIA
  7. GLUCOPHAGE [Concomitant]
     Dosage: UNK
  8. ACTOS [Concomitant]
     Indication: DIABETES MELLITUS
     Dosage: UNK
  9. GLYBURIDE [Concomitant]
     Dosage: UNK

REACTIONS (1)
  - WEIGHT INCREASED [None]
